FAERS Safety Report 4457981-X (Version None)
Quarter: 2004Q3

REPORT INFORMATION
  Report Type: 
  Country: None (occurrence: None)
  Receive Date: 20040917
  Receipt Date: 20040526
  Transmission Date: 20050211
  Serious: Yes (Hospitalization)
  Sender: FDA-Public Use
  Company Number: US-JNJFOC-20040500430

PATIENT
  Age: 80 Year
  Sex: Female
  Weight: 86.1834 kg

DRUGS (3)
  1. TOPAMAX [Suspect]
     Indication: WEIGHT DECREASED
     Dosage: 100 MG
     Dates: start: 20031001
  2. PAXIL [Concomitant]
  3. INSULIN [Concomitant]

REACTIONS (2)
  - FALL [None]
  - LIMB INJURY [None]
